FAERS Safety Report 8930572 (Version 1)
Quarter: 2012Q4

REPORT INFORMATION
  Report Type: 
  Country: PL (occurrence: PL)
  Receive Date: 20121128
  Receipt Date: 20121128
  Transmission Date: 20130627
  Serious: Yes (Other)
  Sender: FDA-Public Use
  Company Number: PL-ROCHE-1158626

PATIENT
  Sex: Male

DRUGS (8)
  1. MABTHERA [Suspect]
     Indication: MANTLE CELL LYMPHOMA
     Route: 065
  2. CYCLOPHOSPHAMIDE [Concomitant]
  3. HYDROXYDAUNORUBICIN [Concomitant]
  4. ONCOVIN [Concomitant]
  5. PREDNISONE [Concomitant]
  6. FLUDARABINE [Concomitant]
  7. MITOXANTRONE [Concomitant]
  8. ZEVALIN [Concomitant]

REACTIONS (4)
  - Lung neoplasm [Unknown]
  - Tonsillar neoplasm [Unknown]
  - Lymphadenopathy [Unknown]
  - Disease recurrence [Unknown]
